FAERS Safety Report 17119672 (Version 1)
Quarter: 2019Q4

REPORT INFORMATION
  Report Type: Spontaneous
  Country: PT (occurrence: PT)
  Receive Date: 20191206
  Receipt Date: 20191206
  Transmission Date: 20200122
  Serious: Yes (Other)
  Sender: FDA-Public Use
  Company Number: PT-ROCHE-2489704

PATIENT
  Age: 84 Year
  Sex: Male

DRUGS (1)
  1. ACTILYSE [Suspect]
     Active Substance: ALTEPLASE
     Indication: ISCHAEMIC STROKE
     Dosage: 63 MG,1 IN 1 ONCE, (6MG DE BOLUS)
     Route: 042

REACTIONS (7)
  - Intra-abdominal fluid collection [Unknown]
  - Hypotension [Unknown]
  - Haemoglobin decreased [Unknown]
  - Abdominal distension [Unknown]
  - Pain [Unknown]
  - Haematoma [Unknown]
  - Sinus tachycardia [Unknown]
